FAERS Safety Report 9225199 (Version 1)
Quarter: 2013Q2

REPORT INFORMATION
  Report Type: Spontaneous
  Country: US (occurrence: None)
  Receive Date: 20130410
  Receipt Date: 20130410
  Transmission Date: 20140414
  Serious: Yes (Other)
  Sender: FDA-Public Use
  Company Number: None

PATIENT
  Age: 71 Year
  Sex: Male

DRUGS (1)
  1. ENBREL 50MG AMGEN [Suspect]
     Indication: PSORIASIS
     Route: 058
     Dates: start: 20130101, end: 20130409

REACTIONS (1)
  - Pruritus [None]
